FAERS Safety Report 25724679 (Version 2)
Quarter: 2025Q3

REPORT INFORMATION
  Report Type: Spontaneous
  Country: US (occurrence: US)
  Receive Date: 20250826
  Receipt Date: 20250909
  Transmission Date: 20251020
  Serious: Yes (Life-Threatening, Hospitalization)
  Sender: TEVA
  Company Number: US-TEVA-VS-3364258

PATIENT
  Age: 81 Year
  Sex: Female

DRUGS (3)
  1. PREDNISONE [Suspect]
     Active Substance: PREDNISONE
     Indication: Acquired haemophilia
     Route: 065
  2. EMICIZUMAB [Suspect]
     Active Substance: EMICIZUMAB
     Indication: Acquired haemophilia
     Route: 065
  3. ANTI-INHIBITOR COAGULANT COMPLEX [Suspect]
     Active Substance: ANTI-INHIBITOR COAGULANT COMPLEX
     Indication: Acquired haemophilia
     Route: 065

REACTIONS (1)
  - Drug ineffective [Unknown]
